FAERS Safety Report 9447692 (Version 3)
Quarter: 2014Q4

REPORT INFORMATION
  Report Type: Spontaneous
  Country: US (occurrence: US)
  Receive Date: 20130808
  Receipt Date: 20141204
  Transmission Date: 20150529
  Serious: Yes (Hospitalization, Other)
  Sender: FDA-Public Use
  Company Number: US-BAYER-2013-094533

PATIENT
  Age: 18 Year
  Sex: Female
  Weight: 56.69 kg

DRUGS (6)
  1. COREG [Concomitant]
     Active Substance: CARVEDILOL
  2. YASMIN [Suspect]
     Active Substance: DROSPIRENONE\ETHINYL ESTRADIOL
     Indication: CONTRACEPTION
     Dosage: UNK
     Dates: start: 2003
  3. LISINOPRIL. [Concomitant]
     Active Substance: LISINOPRIL
  4. FLUOXETINE [Concomitant]
     Active Substance: FLUOXETINE\FLUOXETINE HYDROCHLORIDE
     Indication: DEPRESSION
  5. FLUOXETINE [Concomitant]
     Active Substance: FLUOXETINE\FLUOXETINE HYDROCHLORIDE
     Indication: ANXIETY
  6. YAZ [Suspect]
     Active Substance: DROSPIRENONE\ETHINYL ESTRADIOL
     Indication: CONTRACEPTION
     Dosage: UNK
     Dates: start: 2005, end: 2009

REACTIONS (11)
  - Cardiac ventricular thrombosis [None]
  - Fear of disease [Not Recovered/Not Resolved]
  - Malaise [None]
  - Anxiety [Not Recovered/Not Resolved]
  - Pain [None]
  - Cardiac failure congestive [None]
  - Injury [None]
  - Pain [Not Recovered/Not Resolved]
  - Cardiomyopathy [None]
  - Depression [Not Recovered/Not Resolved]
  - Thrombosis [None]

NARRATIVE: CASE EVENT DATE: 2006
